FAERS Safety Report 16109445 (Version 1)
Quarter: 2019Q1

REPORT INFORMATION
  Report Type: Report from Study
  Country: US (occurrence: US)
  Receive Date: 20190324
  Receipt Date: 20190324
  Transmission Date: 20190418
  Serious: Yes (Other)
  Sender: FDA-Public Use
  Company Number: US-B.I. PHARMACEUTICALS,INC./RIDGEFIELD-2019-BI-007060

PATIENT
  Sex: Male

DRUGS (3)
  1. OFEV [Suspect]
     Active Substance: NINTEDANIB
     Dosage: RESUMED AT A REDUCED DOSE FOR A PERIOD OF TIME (HALF DOSE FOR 1 WEEK)
     Route: 065
  2. OFEV [Suspect]
     Active Substance: NINTEDANIB
     Indication: IDIOPATHIC PULMONARY FIBROSIS
     Dosage: TAKE 1 CAPSULE BY MOUTH TWICE A DAY WITH FOOD AND AT LEAST 12 HOURS APART
     Route: 048
  3. OFEV [Suspect]
     Active Substance: NINTEDANIB
     Dosage: TAKE 1 CAPSULE BY MOUTH TWICE A DAY WITH FOOD AND AT LEAST 12 HOURS APART
     Route: 048

REACTIONS (5)
  - Dyspnoea [Unknown]
  - Pulmonary function test decreased [Unknown]
  - Dyspnoea exertional [Recovered/Resolved]
  - Haemoptysis [Unknown]
  - Painful respiration [Recovered/Resolved]
